FAERS Safety Report 17576745 (Version 1)
Quarter: 2020Q1

REPORT INFORMATION
  Report Type: Other
  Country: US (occurrence: US)
  Receive Date: 20200324
  Receipt Date: 20200324
  Transmission Date: 20200409
  Serious: No
  Sender: FDA-Public Use
  Company Number: US-ACORDA-ACO_164254_2020

PATIENT
  Age: 78 Year
  Sex: Male

DRUGS (3)
  1. INBRIJA [Suspect]
     Active Substance: LEVODOPA
     Indication: ON AND OFF PHENOMENON
  2. INBRIJA [Suspect]
     Active Substance: LEVODOPA
     Indication: PARKINSON^S DISEASE
     Dosage: 42 MILLIGRAM,2 CAPSULES, PRN. NOT TO EXCEED 5 DOSES A DAY
     Dates: start: 20200307
  3. RYTARY [Concomitant]
     Active Substance: CARBIDOPA\LEVODOPA
     Indication: PRODUCT USED FOR UNKNOWN INDICATION
     Dosage: 48.75/195 MG CAPSULES, 4 CAPSULES AT 8AM, 4 CAPSULES AT 12, 3 CAPSULES AT 3.30 AND 2 CAPSULES AT 7.3
     Route: 065

REACTIONS (5)
  - Therapeutic response unexpected [Unknown]
  - Incorrect dose administered [Unknown]
  - Sputum discoloured [Unknown]
  - Deafness bilateral [Unknown]
  - Obsessive-compulsive disorder [Unknown]

NARRATIVE: CASE EVENT DATE: 20200309
